FAERS Safety Report 5427810-6 (Version None)
Quarter: 2007Q3

REPORT INFORMATION
  Report Type: 
  Country: None (occurrence: None)
  Receive Date: 20070828
  Receipt Date: 20070822
  Transmission Date: 20080115
  Serious: Yes (Hospitalization)
  Sender: FDA-Public Use
  Company Number: HQWYE727621JUN07

PATIENT
  Sex: Male
  Weight: 69.01 kg

DRUGS (12)
  1. TORISEL [Suspect]
     Indication: METASTATIC RENAL CELL CARCINOMA
     Route: 042
     Dates: start: 20070417, end: 20070417
  2. TORISEL [Suspect]
     Route: 042
     Dates: start: 20070508, end: 20070508
  3. TORISEL [Suspect]
     Route: 042
     Dates: start: 20070529, end: 20070529
  4. TORISEL [Suspect]
     Route: 042
     Dates: start: 20070605, end: 20070605
  5. TORISEL [Suspect]
     Dosage: TORISEL ON HOLD
     Route: 042
     Dates: start: 20070627, end: 20070627
  6. FLOMAX [Concomitant]
  7. AMLODIPINE [Concomitant]
  8. AMBIEN [Concomitant]
  9. IBUPROFEN [Concomitant]
  10. PERCOCET [Concomitant]
  11. AVODART [Concomitant]
  12. LUNESTA [Concomitant]

REACTIONS (3)
  - EPIGLOTTITIS [None]
  - PHARYNGITIS [None]
  - STREPTOCOCCAL INFECTION [None]
